FAERS Safety Report 6287861-9 (Version None)
Quarter: 2009Q3

REPORT INFORMATION
  Report Type: 
  Country: None (occurrence: None)
  Receive Date: 20090729
  Receipt Date: 20090722
  Transmission Date: 20100115
  Serious: Yes (Hospitalization)
  Sender: FDA-Public Use
  Company Number: FR-WYE-G04096709

PATIENT
  Sex: Female

DRUGS (5)
  1. EFFEXOR [Suspect]
     Indication: BIPOLAR DISORDER
     Route: 048
     Dates: start: 20000101
  2. CITALOPRAM HYDROBROMIDE [Concomitant]
     Dosage: UNKNOWN
  3. DEPAMIDE [Concomitant]
     Dosage: UNKNOWN
     Route: 048
  4. LITHIUM CARBONATE [Suspect]
     Indication: BIPOLAR DISORDER
     Route: 048
     Dates: start: 20000101
  5. TERCIAN [Suspect]
     Dosage: UNKNOWN
     Route: 048
     Dates: start: 20000101

REACTIONS (1)
  - PERIPHERAL SENSORIMOTOR NEUROPATHY [None]
